FAERS Safety Report 4271441-0 (Version None)
Quarter: 2004Q1

REPORT INFORMATION
  Report Type: 
  Country: None (occurrence: None)
  Receive Date: 20040114
  Receipt Date: 20040114
  Transmission Date: 20041129
  Serious: Yes (Hospitalization)
  Sender: FDA-Public Use
  Company Number: None

PATIENT
  Age: 73 Year
  Sex: Male
  Weight: 66 kg

DRUGS (2)
  1. PHENYTOIN [Suspect]
     Dosage: 100 MG QID BY MOUTH
     Route: 048
     Dates: start: 20030811, end: 20031015
  2. TIMOLOL MALEATE [Concomitant]

REACTIONS (2)
  - DRUG TOXICITY [None]
  - PARAESTHESIA [None]
